FAERS Safety Report 5554935-7 (Version None)
Quarter: 2007Q4

REPORT INFORMATION
  Report Type: 
  Country: None (occurrence: None)
  Receive Date: 20071213
  Receipt Date: 20071205
  Transmission Date: 20080405
  Serious: Yes (Hospitalization)
  Sender: FDA-Public Use
  Company Number: FR-ASTRAZENECA-2007CG01744

PATIENT
  Age: 993 Month
  Sex: Male

DRUGS (3)
  1. CRESTOR [Suspect]
     Route: 048
     Dates: start: 20070901, end: 20071201
  2. SYMBICORT [Concomitant]
     Route: 055
  3. PLAVIX [Concomitant]
     Dates: end: 20070101

REACTIONS (1)
  - TENDON RUPTURE [None]
